FAERS Safety Report 5556933-6 (Version None)
Quarter: 2007Q4

REPORT INFORMATION
  Report Type: 
  Country: None (occurrence: None)
  Receive Date: 20071210
  Receipt Date: 20071210
  Transmission Date: 20080405
  Serious: No
  Sender: FDA-Public Use
  Company Number: None

PATIENT
  Age: 36 Year
  Sex: Female
  Weight: 54.4316 kg

DRUGS (1)
  1. TRIPLE ACTION SKIN CREAM [Suspect]
     Indication: PROPHYLAXIS
     Dosage: USE A NIGHT 20 MINUTES AFTER W   EVERY OTHER NIGHT
     Dates: start: 20060912, end: 20060916

REACTIONS (21)
  - BLOOD BLISTER [None]
  - CHEMICAL BURN OF SKIN [None]
  - CONTUSION [None]
  - CRYING [None]
  - ERYTHEMA [None]
  - FACIAL PALSY [None]
  - FEELING HOT [None]
  - HYPERSENSITIVITY [None]
  - ILL-DEFINED DISORDER [None]
  - INFECTION [None]
  - LOCAL SWELLING [None]
  - LYMPHADENOPATHY [None]
  - MOUTH ULCERATION [None]
  - SKIN ATROPHY [None]
  - SKIN BURNING SENSATION [None]
  - SKIN DISORDER [None]
  - SKIN EXFOLIATION [None]
  - SKIN STRIAE [None]
  - SKIN TIGHTNESS [None]
  - SPIDER VEIN [None]
  - SWELLING [None]
